FAERS Safety Report 7759101-2 (Version None)
Quarter: 2011Q3

REPORT INFORMATION
  Report Type: 
  Country: None (occurrence: None)
  Receive Date: 20110919
  Receipt Date: 20110914
  Transmission Date: 20111222
  Serious: Yes (Death)
  Sender: FDA-Public Use
  Company Number: PHEH2011US03434

PATIENT
  Sex: Female

DRUGS (11)
  1. PREDNISONE [Concomitant]
     Dosage: UNK UKN, UNK
  2. ASPIRIN [Concomitant]
     Dosage: UNK UKN, UNK
  3. CLINDAMYCIN [Concomitant]
     Dosage: UNK UKN, UNK
  4. BUDESONIDE [Concomitant]
     Dosage: UNK UKN, UNK
  5. STEROIDS [Concomitant]
     Dosage: UNK UKN, UNK
  6. AMBIEN [Concomitant]
     Dosage: UNK UKN, UNK
  7. MULTI-VITAMINS [Concomitant]
     Dosage: UNK UKN, UNK
  8. RECLAST [Suspect]
     Dosage: UNK UKN, UNK
     Route: 042
     Dates: start: 20100727
  9. SULFASALAZINE [Concomitant]
     Dosage: UNK UKN, UNK
  10. OS-CAL [Concomitant]
     Dosage: UNK UKN, UNK
  11. PROGRAF [Concomitant]
     Dosage: UNK UKN, UNK

REACTIONS (2)
  - DEATH [None]
  - BONE DISORDER [None]
